FAERS Safety Report 5441393-6 (Version None)
Quarter: 2007Q3

REPORT INFORMATION
  Report Type: 
  Country: None (occurrence: None)
  Receive Date: 20070903
  Receipt Date: 20070828
  Transmission Date: 20080115
  Serious: Yes (Hospitalization, Other)
  Sender: FDA-Public Use
  Company Number: IE-BAYER-200710812BNE

PATIENT
  Age: 69 Year
  Sex: Male

DRUGS (4)
  1. NEXAVAR [Suspect]
     Indication: RENAL CELL CARCINOMA STAGE UNSPECIFIED
     Dosage: TOTAL DAILY DOSE: 800 MG
     Route: 048
     Dates: start: 20070713, end: 20070720
  2. ZOTON [Concomitant]
     Indication: PROPHYLAXIS AGAINST GASTROINTESTINAL ULCER
  3. MAXOLON [Concomitant]
  4. DOMPERIDONE [Concomitant]
     Indication: NAUSEA
     Dosage: TOTAL DAILY DOSE: 80 MG

REACTIONS (1)
  - LIVER FUNCTION TEST ABNORMAL [None]
